FAERS Safety Report 5501313-2 (Version None)
Quarter: 2007Q4

REPORT INFORMATION
  Report Type: 
  Country: None (occurrence: None)
  Receive Date: 20071029
  Receipt Date: 20070918
  Transmission Date: 20080405
  Serious: Yes (Hospitalization)
  Sender: FDA-Public Use
  Company Number: US-GENENTECH-247840

PATIENT
  Sex: Male
  Weight: 98.7 kg

DRUGS (4)
  1. BEVACIZUMAB [Suspect]
     Indication: NON-SMALL CELL LUNG CANCER
     Dosage: 1500 MG, Q3W
     Route: 042
     Dates: start: 20070827
  2. BEVACIZUMAB [Suspect]
     Indication: METASTASES TO CENTRAL NERVOUS SYSTEM
  3. ERLOTINIB [Suspect]
     Indication: NON-SMALL CELL LUNG CANCER
     Dosage: 150 MG, QD
     Route: 048
     Dates: start: 20070827
  4. ERLOTINIB [Suspect]
     Indication: METASTASES TO CENTRAL NERVOUS SYSTEM

REACTIONS (2)
  - DIVERTICULITIS [None]
  - SMALL INTESTINAL OBSTRUCTION [None]
